FAERS Safety Report 18157908 (Version 2)
Quarter: 2020Q4

REPORT INFORMATION
  Report Type: Spontaneous
  Country: US (occurrence: US)
  Receive Date: 20200817
  Receipt Date: 20201030
  Transmission Date: 20210113
  Serious: Yes (Hospitalization, Other)
  Sender: FDA-Public Use
  Company Number: US-GILEAD-2020-0489137

PATIENT
  Age: 44 Year
  Sex: Male
  Weight: 84.35 kg

DRUGS (140)
  1. CRIXIVAN [Concomitant]
     Active Substance: INDINAVIR SULFATE
  2. ACARBOSE. [Concomitant]
     Active Substance: ACARBOSE
  3. ASCORBIC ACID. [Concomitant]
     Active Substance: ASCORBIC ACID
  4. ASPIRIN [ACETYLSALICYLIC ACID] [Concomitant]
     Active Substance: ASPIRIN
  5. CICLOPIROX. [Concomitant]
     Active Substance: CICLOPIROX
  6. CLONIDINE. [Concomitant]
     Active Substance: CLONIDINE
  7. DOXYCYCLINE. [Concomitant]
     Active Substance: DOXYCYCLINE
  8. PEPCID [Concomitant]
     Active Substance: FAMOTIDINE
  9. INSULIN LISPRO [Concomitant]
     Active Substance: INSULIN LISPRO
  10. INSULIN ASPART [Concomitant]
     Active Substance: INSULIN ASPART
  11. IPRATROPIUM [Concomitant]
     Active Substance: IPRATROPIUM
  12. LURASIDONE [Concomitant]
     Active Substance: LURASIDONE
  13. METRONIDAZOLE. [Concomitant]
     Active Substance: METRONIDAZOLE
  14. OXCARBAZEPINE. [Concomitant]
     Active Substance: OXCARBAZEPINE
  15. OXYBUTYNIN CHLORIDE. [Concomitant]
     Active Substance: OXYBUTYNIN CHLORIDE
  16. QUETIAPINE. [Concomitant]
     Active Substance: QUETIAPINE
  17. SENNA LEAF [Concomitant]
     Active Substance: SENNA LEAF
  18. SIMETHICONE (DIMETHICONE) [Concomitant]
     Active Substance: DIMETHICONE
  19. TEMAZEPAM. [Concomitant]
     Active Substance: TEMAZEPAM
  20. TENOFOVIR [Concomitant]
     Active Substance: TENOFOVIR
  21. ATRIPLA [Suspect]
     Active Substance: EFAVIRENZ\EMTRICITABINE\TENOFOVIR DISOPROXIL FUMARATE
     Indication: HIV INFECTION
     Dosage: UNK
     Route: 048
     Dates: start: 2007
  22. ATRIPLA [Suspect]
     Active Substance: EFAVIRENZ\EMTRICITABINE\TENOFOVIR DISOPROXIL FUMARATE
     Dosage: UNK
     Route: 048
     Dates: start: 20110423, end: 20141003
  23. EPIVIR [Concomitant]
     Active Substance: LAMIVUDINE
  24. BUTALBITAL [Concomitant]
     Active Substance: BUTALBITAL
  25. CALCIUM CARBONATE. [Concomitant]
     Active Substance: CALCIUM CARBONATE
  26. CALCIUM POLYCARBOPHIL. [Concomitant]
     Active Substance: CALCIUM POLYCARBOPHIL
  27. VITAMIN D [VITAMIN D NOS] [Concomitant]
     Active Substance: VITAMIN D NOS
  28. CARBAMAZEPINE. [Concomitant]
     Active Substance: CARBAMAZEPINE
  29. CYCLOBENZAPRINE HCL [Concomitant]
     Active Substance: CYCLOBENZAPRINE HYDROCHLORIDE
  30. FINASTERIDE. [Concomitant]
     Active Substance: FINASTERIDE
  31. FLUNISOLIDE. [Concomitant]
     Active Substance: FLUNISOLIDE
  32. GLUCOSE [Concomitant]
     Active Substance: DEXTROSE
  33. HYDROCORTISONE/PRAMOXINE [HYDROCORTISONE ACETATE;PRAMOCAINE HYDROCHLOR [Concomitant]
  34. HYDROXYZINE PAMOATE. [Concomitant]
     Active Substance: HYDROXYZINE PAMOATE
  35. NITROFURANTOIN. [Concomitant]
     Active Substance: NITROFURANTOIN
  36. SIMVASTATIN. [Concomitant]
     Active Substance: SIMVASTATIN
  37. TRAMADOL. [Concomitant]
     Active Substance: TRAMADOL
  38. VALACYCLOVIR [Concomitant]
     Active Substance: VALACYCLOVIR HYDROCHLORIDE
  39. VITAMIN E [Concomitant]
     Active Substance: .ALPHA.-TOCOPHEROL
  40. METFORMIN [Concomitant]
     Active Substance: METFORMIN HYDROCHLORIDE
  41. DESCOVY [Concomitant]
     Active Substance: EMTRICITABINE\TENOFOVIR ALAFENAMIDE FUMARATE
  42. TRIUMEQ [Concomitant]
     Active Substance: ABACAVIR SULFATE\DOLUTEGRAVIR SODIUM\LAMIVUDINE
  43. AZITHROMYCIN ANHYDROUS. [Concomitant]
     Active Substance: AZITHROMYCIN ANHYDROUS
  44. BISACODYL. [Concomitant]
     Active Substance: BISACODYL
  45. CALCIUM [Concomitant]
     Active Substance: CALCIUM
  46. CLONAZEPAM. [Concomitant]
     Active Substance: CLONAZEPAM
  47. CLOTRIMAZOLE. [Concomitant]
     Active Substance: CLOTRIMAZOLE
  48. CROTAMITON [Concomitant]
     Active Substance: CROTAMITON
  49. DEXTROSE. [Concomitant]
     Active Substance: DEXTROSE
  50. DOXYCYCLINE HYCLATE. [Concomitant]
     Active Substance: DOXYCYCLINE HYCLATE
  51. FENOFIBRATE. [Concomitant]
     Active Substance: FENOFIBRATE
  52. FOLIC ACID. [Concomitant]
     Active Substance: FOLIC ACID
  53. INFLUENZA VACCINE [Concomitant]
     Active Substance: INFLUENZA VIRUS VACCINE
  54. INSULIN GLARGINE [Concomitant]
     Active Substance: INSULIN GLARGINE
  55. OSELTAMIVIR PHOSPHATE. [Concomitant]
     Active Substance: OSELTAMIVIR PHOSPHATE
  56. PAROXETINE. [Concomitant]
     Active Substance: PAROXETINE
  57. PERMETHRIN. [Concomitant]
     Active Substance: PERMETHRIN
  58. ROSUVASTATIN. [Concomitant]
     Active Substance: ROSUVASTATIN
  59. VALPROIC ACID. [Concomitant]
     Active Substance: VALPROIC ACID
  60. VENLAFAXINE [Concomitant]
     Active Substance: VENLAFAXINE HYDROCHLORIDE
  61. GLIPIZIDE. [Concomitant]
     Active Substance: GLIPIZIDE
  62. ALLOPURINOL. [Concomitant]
     Active Substance: ALLOPURINOL
  63. ARIPIPRAZOLE. [Concomitant]
     Active Substance: ARIPIPRAZOLE
  64. BENZONATATE. [Concomitant]
     Active Substance: BENZONATATE
  65. CEFTRIAXONE. [Concomitant]
     Active Substance: CEFTRIAXONE
  66. CEPHALEXIN [CEFALEXIN] [Concomitant]
     Active Substance: CEPHALEXIN
  67. DIPHENOXYLATE/ATROPINE [Concomitant]
     Active Substance: ATROPINE\DIPHENOXYLATE
  68. FISH OIL [Concomitant]
     Active Substance: FISH OIL
  69. GEMFIBROZIL. [Concomitant]
     Active Substance: GEMFIBROZIL
  70. MAGNESIUM CITRATE. [Concomitant]
     Active Substance: MAGNESIUM CITRATE
  71. MAGNESIUM SULFATE. [Concomitant]
     Active Substance: MAGNESIUM SULFATE
  72. MECLIZINE HCL [Concomitant]
     Active Substance: MECLIZINE HYDROCHLORIDE
  73. NAPROXEN. [Concomitant]
     Active Substance: NAPROXEN
  74. PIOGLITAZONE. [Concomitant]
     Active Substance: PIOGLITAZONE
  75. RABEPRAZOLE [Concomitant]
     Active Substance: RABEPRAZOLE
  76. SALICYLIC ACID. [Concomitant]
     Active Substance: SALICYLIC ACID
  77. TRAZODONE [Concomitant]
     Active Substance: TRAZODONE HYDROCHLORIDE
  78. LISINOPRIL. [Concomitant]
     Active Substance: LISINOPRIL
  79. ACETAMINOPHEN. [Concomitant]
     Active Substance: ACETAMINOPHEN
  80. BUSPIRONE [Concomitant]
     Active Substance: BUSPIRONE HYDROCHLORIDE
  81. CIPROFLOXACIN. [Concomitant]
     Active Substance: CIPROFLOXACIN
  82. CODEINE;PARACETAMOL [Concomitant]
     Active Substance: ACETAMINOPHEN\CODEINE PHOSPHATE
  83. DOXYCYCLINE MONOHYDRATE [Concomitant]
     Active Substance: DOXYCYCLINE
  84. IBUPROFEN. [Concomitant]
     Active Substance: IBUPROFEN
  85. MELATONIN [Concomitant]
     Active Substance: MELATONIN
  86. METOPROLOL. [Concomitant]
     Active Substance: METOPROLOL
  87. ALPRAZOLAM. [Concomitant]
     Active Substance: ALPRAZOLAM
  88. ATORVASTATIN CALCIUM. [Concomitant]
     Active Substance: ATORVASTATIN CALCIUM
  89. CALAMINE [CALAMINE;DIPHENHYDRAMINE HYDROCHLORIDE] [Concomitant]
  90. CHROMIUM [Concomitant]
     Active Substance: CHROMIC CHLORIDE\CHROMIUM
  91. CLINDAMYCIN. [Concomitant]
     Active Substance: CLINDAMYCIN
  92. DOCUSATE [Concomitant]
     Active Substance: DOCUSATE
  93. DOXAZOSIN MESYLATE. [Concomitant]
     Active Substance: DOXAZOSIN MESYLATE
  94. FAMOTIDINE. [Concomitant]
     Active Substance: FAMOTIDINE
  95. FLUTICASONE PROPRIONATE [Concomitant]
     Active Substance: FLUTICASONE PROPIONATE
  96. INSULIN DETEMIR [Concomitant]
     Active Substance: INSULIN DETEMIR
  97. LORATADINE. [Concomitant]
     Active Substance: LORATADINE
  98. MORPHINE [Concomitant]
     Active Substance: MORPHINE
  99. NAFTIFINE HCL [Concomitant]
  100. ACYCLOVIR [ACICLOVIR] [Concomitant]
     Active Substance: ACYCLOVIR
  101. ALENDRONATE SODIUM. [Concomitant]
     Active Substance: ALENDRONATE SODIUM
  102. ALENDRONATE [Concomitant]
     Active Substance: ALENDRONATE SODIUM
  103. ALUMINIUM HYDROXIDE;MAGNESIUM HYDROXIDE;SIMETICONE [Concomitant]
     Active Substance: ALUMINUM HYDROXIDE\DIMETHICONE\MAGNESIUM HYDROXIDE
  104. BACITRACIN/POLYMYXIN B [Concomitant]
  105. BENZTROPINE [BENZATROPINE] [Concomitant]
     Active Substance: BENZTROPINE
  106. CEFPROZIL. [Concomitant]
     Active Substance: CEFPROZIL
  107. CREON [Concomitant]
     Active Substance: PANCRELIPASE AMYLASE\PANCRELIPASE LIPASE\PANCRELIPASE PROTEASE
  108. DIVALPROEX [Concomitant]
     Active Substance: DIVALPROEX SODIUM
  109. GUAIFENESIN DM [Concomitant]
     Active Substance: DEXTROMETHORPHAN\DEXTROMETHORPHAN HYDROBROMIDE\GUAIFENESIN
  110. DOXAZOSIN [Concomitant]
     Active Substance: DOXAZOSIN MESYLATE
  111. DOXEPIN HCL [Concomitant]
     Active Substance: DOXEPIN HYDROCHLORIDE
  112. FEXOFENADINE [Concomitant]
     Active Substance: FEXOFENADINE HYDROCHLORIDE
  113. FIDAXOMICIN [Concomitant]
     Active Substance: FIDAXOMICIN
  114. AQUAPHOR [MINERAL WAX;PARAFFIN, LIQUID;PETROLATUM;WOOL ALCOHOLS] [Concomitant]
  115. INSULIN REGULAR HM [Concomitant]
     Active Substance: INSULIN NOS
  116. CLARITIN [Concomitant]
     Active Substance: LORATADINE
  117. MAGNESIUM HYDROXIDE. [Concomitant]
     Active Substance: MAGNESIUM HYDROXIDE
  118. NYSTATIN. [Concomitant]
     Active Substance: NYSTATIN
  119. OMEPRAZOLE. [Concomitant]
     Active Substance: OMEPRAZOLE
  120. PANTOPRAZOLE [Concomitant]
     Active Substance: PANTOPRAZOLE
  121. PHOSPHATE LAXATIVE [Concomitant]
  122. PRAVASTINE [Concomitant]
     Active Substance: PRAVASTATIN SODIUM
  123. ZOLPIDEM TARTRATE. [Concomitant]
     Active Substance: ZOLPIDEM TARTRATE
  124. PREDNISONE. [Concomitant]
     Active Substance: PREDNISONE
  125. AMOXICILLIN. [Concomitant]
     Active Substance: AMOXICILLIN
  126. BENZOYL PEROXIDE. [Concomitant]
     Active Substance: BENZOYL PEROXIDE
  127. CETIRIZINE [Concomitant]
     Active Substance: CETIRIZINE HYDROCHLORIDE
  128. VITAMIN D3 [Concomitant]
     Active Substance: CHOLECALCIFEROL
  129. CHROMIUM PICOLINATE [Concomitant]
     Active Substance: CHROMIUM PICOLINATE
  130. ETODOLAC. [Concomitant]
     Active Substance: ETODOLAC
  131. GABAPENTIN. [Concomitant]
     Active Substance: GABAPENTIN
  132. METHOCARBAMOL. [Concomitant]
     Active Substance: METHOCARBAMOL
  133. OMEGA 3 ACID ETHYL ESTERS [Concomitant]
     Active Substance: OMEGA-3-ACID ETHYL ESTERS
  134. PHENYLEPHRINE [Concomitant]
     Active Substance: PHENYLEPHRINE HYDROCHLORIDE
  135. PSEUDOEPHEDRINE. [Concomitant]
     Active Substance: PSEUDOEPHEDRINE HYDROCHLORIDE
  136. RISPERIDONE. [Concomitant]
     Active Substance: RISPERIDONE
  137. SODIUM CHLORIDE. [Concomitant]
     Active Substance: SODIUM CHLORIDE
  138. SULFAMETHOXAZOLE;TRIMETHOPRIM [Concomitant]
     Active Substance: SULFAMETHOXAZOLE\TRIMETHOPRIM
  139. TERBINAFINE. [Concomitant]
     Active Substance: TERBINAFINE
  140. THIAMINE. [Concomitant]
     Active Substance: THIAMINE

REACTIONS (9)
  - Dizziness [Recovered/Resolved]
  - Emotional distress [Unknown]
  - Renal impairment [Unknown]
  - Chronic kidney disease [Not Recovered/Not Resolved]
  - Acute kidney injury [Recovered/Resolved]
  - Pain [Unknown]
  - Fatigue [Unknown]
  - Anxiety [Unknown]
  - Nephrolithiasis [Not Recovered/Not Resolved]

NARRATIVE: CASE EVENT DATE: 20140930
